FAERS Safety Report 10231162 (Version 1)
Quarter: 2014Q2

REPORT INFORMATION
  Report Type: Other
  Country: GB (occurrence: GB)
  Receive Date: 20140611
  Receipt Date: 20140611
  Transmission Date: 20141212
  Serious: Yes (Other)
  Sender: FDA-Public Use
  Company Number: GB-TAKEDA-2014TJP006851

PATIENT
  Age: 6 Year
  Sex: Male

DRUGS (9)
  1. LANSOPRAZOLE [Suspect]
     Indication: REFLUX GASTRITIS
     Dosage: UNK
     Route: 048
     Dates: start: 20121101
  2. ORAMORPH [Concomitant]
     Dosage: UNK
  3. CHLORAL HYDRATE [Concomitant]
     Dosage: UNK
  4. LACOSAMIDE [Concomitant]
     Dosage: UNK
  5. BUPRENORPHINE [Concomitant]
     Dosage: UNK
  6. BACLOFEN [Concomitant]
     Dosage: UNK
  7. SODIUM VALPROATE SANDOZ [Concomitant]
     Dosage: UNK
  8. TOPIRAMATE [Concomitant]
     Dosage: UNK
  9. PARACETAMOL [Concomitant]
     Dosage: UNK

REACTIONS (2)
  - Photosensitivity reaction [Recovered/Resolved]
  - Sunburn [Recovered/Resolved]
